FAERS Safety Report 5129936-3 (Version None)
Quarter: 2006Q4

REPORT INFORMATION
  Report Type: 
  Country: None (occurrence: None)
  Receive Date: 20061012
  Receipt Date: 20061005
  Transmission Date: 20070319
  Serious: Yes (Other)
  Sender: FDA-Public Use
  Company Number: CAWYE068228SEP06

PATIENT
  Age: 3 Month
  Sex: 0

DRUGS (1)
  1. EFFEXOR XR [Suspect]
     Dosage: TRANSMAMMARY
     Route: 063
     Dates: end: 20060101

REACTIONS (5)
  - DRUG EXPOSURE VIA BREAST MILK [None]
  - DRUG WITHDRAWAL SYNDROME [None]
  - IRRITABILITY [None]
  - RIB FRACTURE [None]
  - VICTIM OF CHILD ABUSE [None]
